FAERS Safety Report 6689265-3 (Version None)
Quarter: 2010Q2

REPORT INFORMATION
  Report Type: 
  Country: None (occurrence: None)
  Receive Date: 20100416
  Receipt Date: 20100405
  Transmission Date: 20101027
  Serious: Yes (Hospitalization)
  Sender: FDA-Public Use
  Company Number: 2010AP000634

PATIENT
  Age: 69 Year
  Sex: Female

DRUGS (7)
  1. LISINOPRIL [Suspect]
     Indication: HYPERTENSION
     Dosage: 10 MG;QD;PO
     Route: 048
  2. OLANZAPINE [Suspect]
     Indication: BIPOLAR DISORDER
     Dosage: 10 MG;QD;PO
     Route: 048
  3. LITHIUM CARBONATE [Concomitant]
  4. ALPRAZOLAM [Concomitant]
  5. WARFARIN SODIUM [Concomitant]
  6. LEVOTHYROXINE [Concomitant]
  7. DARIFENACIN [Concomitant]

REACTIONS (3)
  - BLOOD CALCIUM INCREASED [None]
  - DRUG INTERACTION [None]
  - PANCREATITIS ACUTE [None]
